FAERS Safety Report 25386880 (Version 5)
Quarter: 2025Q4

REPORT INFORMATION
  Report Type: Report from Study
  Country: EU (occurrence: EU)
  Receive Date: 20250602
  Receipt Date: 20251009
  Transmission Date: 20260118
  Serious: Yes (Other)
  Sender: TAKEDA
  Company Number: EU-TAKEDA-2025TUS051047

PATIENT
  Age: 68 Year
  Sex: Female

DRUGS (24)
  1. TEDUGLUTIDE [Suspect]
     Active Substance: TEDUGLUTIDE
     Indication: Short-bowel syndrome
     Dosage: 0.34 MILLILITER, QD
     Dates: start: 20220324
  2. TEDUGLUTIDE [Suspect]
     Active Substance: TEDUGLUTIDE
     Dosage: 0.34 MILLILITER, QD
     Dates: start: 20220328
  3. TEDUGLUTIDE [Suspect]
     Active Substance: TEDUGLUTIDE
     Dosage: 0.3 MILLILITER, QD
     Dates: start: 202203
  4. TEDUGLUTIDE [Suspect]
     Active Substance: TEDUGLUTIDE
     Dosage: UNK, QOD
     Dates: start: 20230424
  5. TEDUGLUTIDE [Suspect]
     Active Substance: TEDUGLUTIDE
     Dosage: 0.15 MILLILITER, QOD
     Dates: start: 20240717, end: 20240722
  6. TEDUGLUTIDE [Suspect]
     Active Substance: TEDUGLUTIDE
     Dosage: 0.15 MILLILITER
  7. TEDUGLUTIDE [Suspect]
     Active Substance: TEDUGLUTIDE
     Dosage: 3 MILLILITER, QD
  8. TEDUGLUTIDE [Suspect]
     Active Substance: TEDUGLUTIDE
     Dosage: 0.15 MILLILITER, QD
  9. TEDUGLUTIDE [Suspect]
     Active Substance: TEDUGLUTIDE
     Dosage: 0.15 MILLILITER, QD
  10. TEDUGLUTIDE [Suspect]
     Active Substance: TEDUGLUTIDE
     Dosage: 0.15 MILLILITER, QD
  11. TEDUGLUTIDE [Suspect]
     Active Substance: TEDUGLUTIDE
     Dosage: 0.15 MILLILITER, QD
  12. TEDUGLUTIDE [Suspect]
     Active Substance: TEDUGLUTIDE
     Dosage: 0.15 MILLILITER, QD
  13. TEDUGLUTIDE [Suspect]
     Active Substance: TEDUGLUTIDE
     Dosage: 0.15 MILLILITER, QD
  14. TEDUGLUTIDE [Suspect]
     Active Substance: TEDUGLUTIDE
     Dosage: 0.15 MILLILITER, QD
  15. TEDUGLUTIDE [Suspect]
     Active Substance: TEDUGLUTIDE
     Dosage: 0.15 MILLILITER, QOD
  16. TEDUGLUTIDE [Suspect]
     Active Substance: TEDUGLUTIDE
     Dosage: 0.15 MILLILITER, QD
  17. ASPIRIN LYSINE [Suspect]
     Active Substance: ASPIRIN LYSINE
     Indication: Product used for unknown indication
     Dosage: UNK
  18. PANCRELIPASE [Concomitant]
     Active Substance: PANCRELIPASE
     Dosage: 1 DOSAGE FORM
  19. SERTRALINE [Concomitant]
     Active Substance: SERTRALINE HYDROCHLORIDE
     Dosage: UNK
  20. LOPERAMIDE [Concomitant]
     Active Substance: LOPERAMIDE
     Dosage: UNK
  21. CHOLECALCIFEROL [Concomitant]
     Active Substance: CHOLECALCIFEROL
     Dosage: UNK
  22. KONJAC MANNAN [Concomitant]
     Active Substance: KONJAC MANNAN
     Dosage: 1 DOSAGE FORM, Q2WEEKS
  23. CREON [Concomitant]
     Active Substance: PANCRELIPASE AMYLASE\PANCRELIPASE LIPASE\PANCRELIPASE PROTEASE
     Dosage: UNK
  24. ACETAMINOPHEN [Concomitant]
     Active Substance: ACETAMINOPHEN
     Indication: Abdominal pain
     Dosage: 1 GRAM

REACTIONS (50)
  - Abdominal hernia [Not Recovered/Not Resolved]
  - Intestinal obstruction [Recovered/Resolved]
  - Hunger [Recovering/Resolving]
  - Stoma complication [Recovered/Resolved]
  - COVID-19 [Not Recovered/Not Resolved]
  - Mucous stools [Recovering/Resolving]
  - Thirst [Recovering/Resolving]
  - Abdominal discomfort [Recovered/Resolved]
  - Hernia [Not Recovered/Not Resolved]
  - Malaise [Unknown]
  - Abnormal faeces [Unknown]
  - Stress [Unknown]
  - Dyspnoea exertional [Unknown]
  - Purulent discharge [Recovering/Resolving]
  - Anorectal discomfort [Not Recovered/Not Resolved]
  - Inappropriate schedule of product administration [Unknown]
  - Vaginal discharge [Recovering/Resolving]
  - Product dose omission issue [Unknown]
  - Gastric polyps [Not Recovered/Not Resolved]
  - Nasopharyngitis [Recovering/Resolving]
  - Abdominal pain [Recovered/Resolved]
  - Duodenal polyp [Not Recovered/Not Resolved]
  - Genital haemorrhage [Recovered/Resolved]
  - Muscle spasms [Unknown]
  - Night sweats [Recovered/Resolved]
  - Herpes zoster [Recovering/Resolving]
  - Female genital tract fistula [Recovering/Resolving]
  - Genital discharge [Recovering/Resolving]
  - Asthenia [Not Recovered/Not Resolved]
  - Hyperhidrosis [Not Recovered/Not Resolved]
  - Stomal hernia [Not Recovered/Not Resolved]
  - Dysuria [Not Recovered/Not Resolved]
  - Frequent bowel movements [Recovered/Resolved]
  - Proctalgia [Not Recovered/Not Resolved]
  - Anal fistula [Not Recovered/Not Resolved]
  - Gingival pain [Recovered/Resolved]
  - Fatigue [Recovering/Resolving]
  - Periorbital oedema [Recovered/Resolved]
  - Pain in extremity [Recovered/Resolved]
  - Stoma site haemorrhage [Recovered/Resolved]
  - Vaginal haemorrhage [Recovered/Resolved]
  - Anal pruritus [Recovered/Resolved]
  - Anorectal discomfort [Recovering/Resolving]
  - Tooth abscess [Recovering/Resolving]
  - Anal haemorrhage [Recovered/Resolved]
  - Stoma site pain [Recovering/Resolving]
  - Influenza like illness [Recovering/Resolving]
  - Influenza [Recovered/Resolved]
  - Abdominal distension [Recovered/Resolved]
  - Dyspnoea [Not Recovered/Not Resolved]

NARRATIVE: CASE EVENT DATE: 20230105
